FAERS Safety Report 20657068 (Version 5)
Quarter: 2022Q4

REPORT INFORMATION
  Report Type: Spontaneous
  Country: CA (occurrence: CA)
  Receive Date: 20220331
  Receipt Date: 20221109
  Transmission Date: 20230113
  Serious: Yes (Other)
  Sender: FDA-Public Use
  Company Number: CA-JNJFOC-20220354977

PATIENT
  Age: 56 Year
  Sex: Female

DRUGS (16)
  1. UPTRAVI [Suspect]
     Active Substance: SELEXIPAG
     Indication: Pulmonary arterial hypertension
     Route: 048
     Dates: start: 20220303, end: 20220309
  2. UPTRAVI [Suspect]
     Active Substance: SELEXIPAG
     Indication: Connective tissue disorder
     Route: 048
     Dates: start: 20220526
  3. UPTRAVI [Suspect]
     Active Substance: SELEXIPAG
     Route: 048
     Dates: start: 20220812
  4. UPTRAVI [Suspect]
     Active Substance: SELEXIPAG
     Dosage: 800 MCG IN AM AND 1000MCG IN PM
     Route: 048
     Dates: start: 20220903
  5. OPSUMIT [Suspect]
     Active Substance: MACITENTAN
     Indication: Pulmonary arterial hypertension
     Route: 048
  6. OPSUMIT [Suspect]
     Active Substance: MACITENTAN
     Indication: Connective tissue disorder
  7. BOSENTAN [Suspect]
     Active Substance: BOSENTAN
     Indication: Pulmonary arterial hypertension
     Route: 048
  8. BOSENTAN [Suspect]
     Active Substance: BOSENTAN
     Indication: Connective tissue disorder
  9. REVATIO [Suspect]
     Active Substance: SILDENAFIL CITRATE
     Indication: Pulmonary arterial hypertension
     Route: 048
     Dates: start: 20220207
  10. REVATIO [Suspect]
     Active Substance: SILDENAFIL CITRATE
     Indication: Connective tissue disorder
  11. PREVACID [Concomitant]
     Active Substance: LANSOPRAZOLE
  12. ZOPICLONE [Concomitant]
     Active Substance: ZOPICLONE
  13. SYNTHROID [Concomitant]
     Active Substance: LEVOTHYROXINE SODIUM
  14. AMLODIPINE [Concomitant]
     Active Substance: AMLODIPINE BESYLATE
  15. ROSUVASTATIN [Concomitant]
     Active Substance: ROSUVASTATIN
  16. LASIX [Concomitant]
     Active Substance: FUROSEMIDE

REACTIONS (6)
  - Pain in extremity [Recovering/Resolving]
  - Muscle spasms [Not Recovered/Not Resolved]
  - Feeling cold [Recovered/Resolved]
  - Headache [Not Recovered/Not Resolved]
  - Diarrhoea [Recovering/Resolving]
  - Insomnia [Recovered/Resolved]

NARRATIVE: CASE EVENT DATE: 20220303
